FAERS Safety Report 4854090-2 (Version None)
Quarter: 2005Q4

REPORT INFORMATION
  Report Type: 
  Country: None (occurrence: None)
  Receive Date: 20051213
  Receipt Date: 20051201
  Transmission Date: 20060501
  Serious: Yes (Hospitalization, Other)
  Sender: FDA-Public Use
  Company Number: 2005071351

PATIENT
  Age: 61 Year
  Sex: Female
  Weight: 81.6475 kg

DRUGS (5)
  1. BEXTRA [Suspect]
     Indication: ARTHRALGIA
     Dosage: (10 MG), ORAL
     Route: 048
  2. BEXTRA [Suspect]
     Indication: BACK PAIN
     Dosage: (10 MG), ORAL
     Route: 048
  3. AVANDIA [Concomitant]
  4. NEURONTIN [Concomitant]
  5. ZOCOR [Concomitant]

REACTIONS (7)
  - BLISTER [None]
  - HEART RATE INCREASED [None]
  - HYPERTENSION [None]
  - KNEE ARTHROPLASTY [None]
  - MENTAL DISORDER [None]
  - PNEUMONIA [None]
  - RASH [None]
